FAERS Safety Report 9591123 (Version 1)
Quarter: 2013Q4

REPORT INFORMATION
  Report Type: Spontaneous
  Country: US (occurrence: US)
  Receive Date: 20131003
  Receipt Date: 20131003
  Transmission Date: 20140711
  Serious: No
  Sender: FDA-Public Use
  Company Number: US-AMGEN-USASP2012075410

PATIENT
  Sex: Male

DRUGS (6)
  1. ENBREL [Suspect]
     Indication: RHEUMATOID ARTHRITIS
     Dosage: 50 MG, QWK
     Route: 058
  2. FOSAMAX [Concomitant]
     Dosage: 10 MG, UNK
  3. METHOTREXATE [Concomitant]
     Dosage: 2.5 MG, UNK
  4. HYDROCODONE W/APAP                 /01554201/ [Concomitant]
     Dosage: 5-500 MG
  5. FLEXERIL                           /00428402/ [Concomitant]
     Dosage: 5 MG, UNK
  6. FOLIC ACID [Concomitant]
     Dosage: UNK

REACTIONS (1)
  - Injection site pain [Unknown]
